FAERS Safety Report 25926714 (Version 1)
Quarter: 2025Q4

REPORT INFORMATION
  Report Type: Report from Study
  Country: CA (occurrence: CA)
  Receive Date: 20251015
  Receipt Date: 20251015
  Transmission Date: 20260118
  Serious: Yes (Hospitalization)
  Sender: DAIICHI
  Company Number: CA-AstraZeneca-2024A204407

PATIENT
  Sex: Female
  Weight: 67 kg

DRUGS (2)
  1. ENHERTU [Suspect]
     Active Substance: FAM-TRASTUZUMAB DERUXTECAN-NXKI
     Indication: HER2 positive breast cancer
     Dosage: 214.4 MILLIGRAM, Q3W
     Route: 042
     Dates: start: 20220610
  2. ENHERTU [Suspect]
     Active Substance: FAM-TRASTUZUMAB DERUXTECAN-NXKI
     Dosage: 214.4 MILLIGRAM, Q3W
     Route: 042
     Dates: start: 20240822

REACTIONS (2)
  - Ear haemorrhage [Unknown]
  - Illness [Unknown]
